FAERS Safety Report 7245498-9 (Version None)
Quarter: 2011Q1

REPORT INFORMATION
  Report Type: 
  Country: None (occurrence: None)
  Receive Date: 20110126
  Receipt Date: 20110119
  Transmission Date: 20110831
  Serious: Yes (Death, Hospitalization)
  Sender: FDA-Public Use
  Company Number: IT-CELGENEUS-083-21880-10110498

PATIENT
  Sex: Male

DRUGS (9)
  1. PREDNISONE [Concomitant]
     Route: 048
  2. MELPHALAN [Suspect]
     Indication: MULTIPLE MYELOMA
     Route: 065
  3. LASIX [Concomitant]
     Route: 048
  4. REVLIMID [Suspect]
     Indication: MULTIPLE MYELOMA
     Route: 048
     Dates: start: 20101011, end: 20101023
  5. LEVOFLOXACIN [Concomitant]
     Route: 065
     Dates: start: 20101021
  6. ASA [Concomitant]
     Route: 065
  7. ALLOPURINOL [Concomitant]
     Route: 048
  8. OMEPRAZOLE [Concomitant]
     Route: 048
  9. PARACETAMOL [Concomitant]
     Route: 065
     Dates: start: 20101021

REACTIONS (4)
  - HYPOXIA [None]
  - PNEUMONIA KLEBSIELLA [None]
  - FEBRILE NEUTROPENIA [None]
  - RASH GENERALISED [None]
